FAERS Safety Report 10990308 (Version 1)
Quarter: 2015Q2

REPORT INFORMATION
  Report Type: Spontaneous
  Country: JP (occurrence: JP)
  Receive Date: 20150406
  Receipt Date: 20150406
  Transmission Date: 20150821
  Serious: Yes (Other)
  Sender: FDA-Public Use
  Company Number: JP-TEVA-552945ISR

PATIENT
  Age: 71 Year
  Sex: Male

DRUGS (2)
  1. METHYLPREDNISOLONE. [Suspect]
     Active Substance: METHYLPREDNISOLONE
     Indication: MYELITIS
     Dosage: 1000 MILLIGRAM DAILY; 1000MG/D FOR 3D
     Route: 042
  2. PREDNISOLONE. [Suspect]
     Active Substance: PREDNISOLONE
     Indication: MYELITIS
     Dosage: 60 MILLIGRAM DAILY; 60MG/D (1MG/KG/D)
     Route: 048

REACTIONS (2)
  - Cystitis haemorrhagic [Unknown]
  - Diabetes mellitus [Unknown]
